FAERS Safety Report 16552198 (Version 1)
Quarter: 2019Q3

REPORT INFORMATION
  Report Type: Spontaneous
  Country: US (occurrence: US)
  Receive Date: 20190710
  Receipt Date: 20190710
  Transmission Date: 20191004
  Serious: No
  Sender: FDA-Public Use
  Company Number: US-PFIZER INC-2018118153

PATIENT
  Age: 9 Year
  Sex: Male

DRUGS (3)
  1. GENOTROPIN [Suspect]
     Active Substance: SOMATROPIN
     Indication: GROWTH HORMONE DEFICIENCY
     Dosage: 1.2 MG, 1X/DAY
     Dates: start: 2010, end: 20180319
  2. GENOTROPIN [Suspect]
     Active Substance: SOMATROPIN
     Indication: GROWTH HORMONE DEFICIENCY
     Dosage: 1.2 MG, DAILY
     Dates: start: 2010
  3. GENOTROPIN [Suspect]
     Active Substance: SOMATROPIN
     Dosage: 1.2 MG, DAILY
     Dates: start: 20160522

REACTIONS (4)
  - Device breakage [Unknown]
  - Poor quality device used [Recovered/Resolved]
  - Precocious puberty [Unknown]
  - Product dose omission [Unknown]

NARRATIVE: CASE EVENT DATE: 20180315
